FAERS Safety Report 14934378 (Version 2)
Quarter: 2018Q4

REPORT INFORMATION
  Report Type: Spontaneous
  Country: TW (occurrence: TW)
  Receive Date: 20180524
  Receipt Date: 20181101
  Transmission Date: 20190204
  Serious: Yes (Hospitalization, Other)
  Sender: FDA-Public Use
  Company Number: TW-ACTELION-A-CH2018-172222

PATIENT
  Age: 45 Year
  Sex: Male
  Weight: 90.2 kg

DRUGS (7)
  1. NEOMYCIN. [Concomitant]
     Active Substance: NEOMYCIN
     Dosage: 28 G, UNK
     Dates: start: 20180411, end: 20180418
  2. ALLOPURINOL. [Concomitant]
     Active Substance: ALLOPURINOL
     Dosage: UNK
     Route: 048
     Dates: start: 20170920, end: 20180513
  3. FUROSEMIDE. [Concomitant]
     Active Substance: FUROSEMIDE
     Dosage: 40 MG, PRN
     Route: 048
     Dates: start: 20150422, end: 20180513
  4. SPIRONOLACTONE. [Concomitant]
     Active Substance: SPIRONOLACTONE
     Dosage: 25 MG, QD
     Route: 048
     Dates: start: 20150422, end: 20180513
  5. RADI K [Concomitant]
     Dosage: 595 MG, QD
     Route: 048
     Dates: start: 20160301, end: 20180513
  6. OPSUMIT [Suspect]
     Active Substance: MACITENTAN
     Indication: PULMONARY ARTERIAL HYPERTENSION
     Dosage: 10 MG, QD
     Route: 048
     Dates: start: 20150422, end: 20180513
  7. AMPICILLIN [Concomitant]
     Active Substance: AMPICILLIN
     Dosage: 500 MG, UNK
     Route: 048
     Dates: start: 20180411, end: 20180418

REACTIONS (28)
  - Hepatitis [Unknown]
  - Upper gastrointestinal haemorrhage [Unknown]
  - Heart rate decreased [Unknown]
  - Ascites [Unknown]
  - Hypotension [Unknown]
  - Spider naevus [Unknown]
  - Jaundice [Unknown]
  - Hyperbilirubinaemia [Unknown]
  - Liver function test increased [Unknown]
  - Tachycardia [Unknown]
  - Ocular icterus [Unknown]
  - Oedema peripheral [Unknown]
  - Abdominal pain [Unknown]
  - Transfusion [Unknown]
  - Respiratory failure [Unknown]
  - Haematochezia [Unknown]
  - Blood pressure decreased [Unknown]
  - Aspartate aminotransferase increased [Unknown]
  - Yellow skin [Unknown]
  - Metabolic acidosis [Unknown]
  - Alanine aminotransferase increased [Unknown]
  - Haematemesis [Unknown]
  - Chest pain [Unknown]
  - Dyspnoea [Unknown]
  - Hypovolaemic shock [Unknown]
  - Weight decreased [Unknown]
  - Blood bilirubin increased [Unknown]
  - Acute kidney injury [Unknown]

NARRATIVE: CASE EVENT DATE: 20170505
